FAERS Safety Report 6451209-7 (Version None)
Quarter: 2009Q4

REPORT INFORMATION
  Report Type: 
  Country: None (occurrence: None)
  Receive Date: 20091123
  Receipt Date: 20091123
  Transmission Date: 20100525
  Serious: Yes (Other)
  Sender: FDA-Public Use
  Company Number: BR-PFIZER INC-2009297965

PATIENT
  Sex: Male
  Weight: 63 kg

DRUGS (2)
  1. XALATAN [Suspect]
     Dosage: UNK
     Route: 047
  2. DILACORON [Concomitant]
     Dosage: UNK

REACTIONS (2)
  - CATARACT OPERATION [None]
  - INTRAOCULAR PRESSURE INCREASED [None]
